FAERS Safety Report 7954293-4 (Version None)
Quarter: 2011Q4

REPORT INFORMATION
  Report Type: 
  Country: None (occurrence: None)
  Receive Date: 20111129
  Receipt Date: 20111116
  Transmission Date: 20120403
  Serious: Yes (Hospitalization, Other)
  Sender: FDA-Public Use
  Company Number: 2011SP026445

PATIENT
  Age: 49 Year
  Sex: Female
  Weight: 78.4723 kg

DRUGS (5)
  1. FLUOCINONIDE [Concomitant]
  2. NUVARING [Suspect]
     Indication: HORMONE THERAPY
     Dates: start: 20090709, end: 20090722
  3. MULTI-VITAMIN [Concomitant]
  4. PROVIGIL [Concomitant]
  5. FISH OIL [Concomitant]

REACTIONS (12)
  - HYPERCOAGULATION [None]
  - ARTHRALGIA [None]
  - MITRAL VALVE INCOMPETENCE [None]
  - ANGINA PECTORIS [None]
  - PNEUMONIA [None]
  - TRICUSPID VALVE INCOMPETENCE [None]
  - PULMONARY EMBOLISM [None]
  - JOINT INJURY [None]
  - PLEURAL EFFUSION [None]
  - CARPAL TUNNEL SYNDROME [None]
  - PULMONARY INFARCTION [None]
  - EPICONDYLITIS [None]
